FAERS Safety Report 6716334-1 (Version None)
Quarter: 2010Q2

REPORT INFORMATION
  Report Type: 
  Country: None (occurrence: None)
  Receive Date: 20100506
  Receipt Date: 20100506
  Transmission Date: 20101027
  Serious: Yes (Life-Threatening, Hospitalization)
  Sender: FDA-Public Use
  Company Number: None

PATIENT
  Age: 53 Year
  Sex: Female
  Weight: 71.7 kg

DRUGS (5)
  1. DIPHENHYDRAMINE HCL [Suspect]
     Indication: SUICIDE ATTEMPT
     Dosage: 2 7500MG ONCE PO
     Route: 048
     Dates: start: 20100201
  2. LAMOTRIGINE [Concomitant]
  3. SALMETEROL/FLUTICASONE [Concomitant]
  4. LITHIUM CARBONATE [Concomitant]
  5. SIMVASTATIN [Concomitant]

REACTIONS (7)
  - BLOOD POTASSIUM INCREASED [None]
  - CONVULSION [None]
  - ELECTROCARDIOGRAM QRS COMPLEX PROLONGED [None]
  - ELECTROMECHANICAL DISSOCIATION [None]
  - HYPOTENSION [None]
  - SOMNOLENCE [None]
  - SUICIDE ATTEMPT [None]
